FAERS Safety Report 16437597 (Version 1)
Quarter: 2019Q2

REPORT INFORMATION
  Report Type: Spontaneous
  Country: US (occurrence: US)
  Receive Date: 20190615
  Receipt Date: 20190615
  Transmission Date: 20190711
  Serious: Yes (Other)
  Sender: FDA-Public Use
  Company Number: US-ABBVIE-19S-163-2756587-00

PATIENT
  Age: 48 Year
  Sex: Female
  Weight: 78.54 kg

DRUGS (4)
  1. LUPRON DEPOT [Suspect]
     Active Substance: LEUPROLIDE ACETATE
     Indication: PELVIC PAIN
     Dosage: UNKNOWN
     Route: 050
     Dates: start: 20190412, end: 20190412
  2. LUPRON DEPOT [Suspect]
     Active Substance: LEUPROLIDE ACETATE
     Indication: ENDOMETRIOSIS
  3. EPINEPHRINE. [Suspect]
     Active Substance: EPINEPHRINE
     Indication: HYPERSENSITIVITY
     Route: 030
     Dates: start: 20190412, end: 20190412
  4. EPINEPHRINE. [Suspect]
     Active Substance: EPINEPHRINE
     Route: 030
     Dates: start: 201904

REACTIONS (12)
  - Blood bilirubin decreased [Unknown]
  - Dizziness [Unknown]
  - Nausea [Unknown]
  - Joint swelling [Unknown]
  - White blood cell count increased [Unknown]
  - Hypersensitivity [Unknown]
  - Pain in extremity [Unknown]
  - Dyspnoea [Unknown]
  - Loss of consciousness [Unknown]
  - Swelling face [Unknown]
  - Anxiety [Unknown]
  - Aspartate aminotransferase decreased [Unknown]

NARRATIVE: CASE EVENT DATE: 20190412
